FAERS Safety Report 8880101 (Version 1)
Quarter: 2012Q4

REPORT INFORMATION
  Report Type: 
  Country: US (occurrence: US)
  Receive Date: 20121101
  Receipt Date: 20121101
  Transmission Date: 20130627
  Serious: No
  Sender: FDA-Public Use
  Company Number: US-TARO-2012P1028792

PATIENT
  Age: 71 Year
  Sex: Female
  Weight: 77.11 kg

DRUGS (7)
  1. PHENYTOIN SODIUM EXTENDED CAPSULES USP 100MG [Suspect]
     Dates: start: 20101106
  2. LEVOTHYROXINE [Concomitant]
  3. HYDROCHLOROTHIAZIDE [Concomitant]
  4. AMLODIPINE BESYLATE [Concomitant]
  5. PHENOBARBITAL [Concomitant]
  6. PRAVASTATIN [Concomitant]
  7. OMEPRAZOLE [Concomitant]

REACTIONS (3)
  - Hair growth abnormal [Not Recovered/Not Resolved]
  - Anticonvulsant drug level decreased [Not Recovered/Not Resolved]
  - Eyelid disorder [Not Recovered/Not Resolved]
